FAERS Safety Report 12462456 (Version 1)
Quarter: 2016Q2

REPORT INFORMATION
  Report Type: Spontaneous
  Country: US (occurrence: US)
  Receive Date: 20160614
  Receipt Date: 20160614
  Transmission Date: 20160815
  Serious: No
  Sender: FDA-Public Use
  Company Number: US-ACCORD-036803

PATIENT

DRUGS (1)
  1. CLONAZEPAM ACCORD [Suspect]
     Active Substance: CLONAZEPAM
     Indication: PRODUCT USED FOR UNKNOWN INDICATION
     Dosage: STRENGTH: 1 MG?MONTHLY 3 TIMES A DAY

REACTIONS (4)
  - Drug withdrawal syndrome [Unknown]
  - Product substitution issue [Unknown]
  - Product quality issue [Unknown]
  - Product measured potency issue [Unknown]
